FAERS Safety Report 11542978 (Version 2)
Quarter: 2015Q4

REPORT INFORMATION
  Report Type: Spontaneous
  Country: US (occurrence: US)
  Receive Date: 20150923
  Receipt Date: 20151016
  Transmission Date: 20160304
  Serious: Yes (Other)
  Sender: FDA-Public Use
  Company Number: US-ASTRAZENECA-2015SE89682

PATIENT
  Age: 62 Year
  Sex: Female
  Weight: 65.8 kg

DRUGS (9)
  1. PULMICORT FLEXHALER [Suspect]
     Active Substance: BUDESONIDE
     Indication: WHEEZING
     Dosage: 90 MCG 165 MG, 90 MCG 1 PUFF BID ON AND OFF
     Route: 055
  2. PULMICORT FLEXHALER [Suspect]
     Active Substance: BUDESONIDE
     Indication: BRONCHITIS
     Dosage: 90 MCG 165 MG, 90 MCG 1 PUFF BID ON AND OFF
     Route: 055
  3. OXYCOTIN [Concomitant]
     Indication: ANALGESIC THERAPY
     Dates: start: 1979
  4. MORPHINE [Concomitant]
     Active Substance: MORPHINE
     Indication: ANALGESIC THERAPY
  5. BUSPIRONE HYDROCHLORIDE. [Concomitant]
     Active Substance: BUSPIRONE HYDROCHLORIDE
     Indication: ANXIETY
     Dates: start: 2005
  6. ADVAIR DISK [Concomitant]
     Indication: DYSPNOEA
     Dosage: AS REQUIRED
  7. GABAPENTIN. [Concomitant]
     Active Substance: GABAPENTIN
     Indication: BACK DISORDER
     Dates: start: 2005
  8. LUNESTA [Concomitant]
     Active Substance: ESZOPICLONE
     Indication: SLEEP DISORDER
     Dates: start: 2005
  9. ALBUTEROL. [Concomitant]
     Active Substance: ALBUTEROL
     Indication: INHALATION THERAPY
     Dosage: AS REQUIRED

REACTIONS (12)
  - Cerebrovascular accident [Unknown]
  - Bronchitis [Unknown]
  - Drug dose omission [Unknown]
  - Dysgeusia [Unknown]
  - Body height increased [Unknown]
  - Mass [Unknown]
  - Intentional product misuse [Unknown]
  - Product use issue [Unknown]
  - Intentional device misuse [Unknown]
  - Respiratory disorder [Unknown]
  - Device malfunction [Unknown]
  - Bone disorder [Unknown]

NARRATIVE: CASE EVENT DATE: 2011
